FAERS Safety Report 17116870 (Version 1)
Quarter: 2019Q4

REPORT INFORMATION
  Report Type: Spontaneous
  Country: US (occurrence: US)
  Receive Date: 20191205
  Receipt Date: 20191205
  Transmission Date: 20200122
  Serious: No
  Sender: FDA-Public Use
  Company Number: US-BAUSCH-BL-2019-062575

PATIENT
  Age: 26 Year
  Sex: Female
  Weight: 59.02 kg

DRUGS (4)
  1. LAMOTRIGINE. [Concomitant]
     Active Substance: LAMOTRIGINE
     Indication: PRODUCT USED FOR UNKNOWN INDICATION
  2. CLINDAMYCIN AND BENZOYL PEROXIDE [Suspect]
     Active Substance: BENZOYL PEROXIDE\CLINDAMYCIN PHOSPHATE
     Indication: ACNE
     Dosage: OVER ONE YEAR, TWICE DAILY ON THE FACE
     Route: 061
     Dates: start: 2018
  3. CLINDAMYCIN AND BENZOYL PEROXIDE [Suspect]
     Active Substance: BENZOYL PEROXIDE\CLINDAMYCIN PHOSPHATE
     Dosage: START DATE: APPROXIMATELY ONE WEEK AGO; LAST REFILL
     Route: 061
     Dates: start: 201911
  4. VALACYCLOVIR [Concomitant]
     Active Substance: VALACYCLOVIR HYDROCHLORIDE
     Indication: PRODUCT USED FOR UNKNOWN INDICATION

REACTIONS (4)
  - Acne [Unknown]
  - Drug ineffective [Unknown]
  - Product odour abnormal [Unknown]
  - Product quality issue [Unknown]

NARRATIVE: CASE EVENT DATE: 201911
